FAERS Safety Report 23891307 (Version 4)
Quarter: 2025Q3

REPORT INFORMATION
  Report Type: Spontaneous
  Country: US (occurrence: US)
  Receive Date: 20240523
  Receipt Date: 20250818
  Transmission Date: 20251021
  Serious: Yes (Hospitalization, Other)
  Sender: SANOFI AVENTIS
  Company Number: US-SA-SAC20240523000377

PATIENT
  Age: 67 Year
  Sex: Female

DRUGS (16)
  1. KEVZARA [Suspect]
     Active Substance: SARILUMAB
     Indication: Rheumatoid arthritis
     Dosage: 200 MG, QOW
     Route: 058
     Dates: start: 20240418, end: 2024
  2. KEVZARA [Suspect]
     Active Substance: SARILUMAB
     Indication: Type 1 diabetes mellitus
     Dosage: 200 MG, QOW
     Route: 058
  3. HYDROCODONE [Concomitant]
     Active Substance: HYDROCODONE
  4. OXYCODONE HYDROCHLORIDE [Concomitant]
     Active Substance: OXYCODONE HYDROCHLORIDE
  5. CHROMIUM [Concomitant]
     Active Substance: CHROMIC CHLORIDE\CHROMIUM
  6. CITALOPRAM HYDROCHLORIDE [Concomitant]
     Active Substance: CITALOPRAM HYDROCHLORIDE
  7. LEFLUNOMIDE [Concomitant]
     Active Substance: LEFLUNOMIDE
  8. PREDNISONE [Concomitant]
     Active Substance: PREDNISONE
  9. ROSUVASTATIN [Concomitant]
     Active Substance: ROSUVASTATIN
  10. VALSARTAN [Concomitant]
     Active Substance: VALSARTAN
  11. MAGNESIUM [Concomitant]
     Active Substance: MAGNESIUM
  12. VITAMINS NOS [Concomitant]
     Active Substance: VITAMINS
  13. OMEGA 3 [SALMON OIL] [Concomitant]
  14. HERBALS\TURMERIC [Concomitant]
     Active Substance: HERBALS\TURMERIC
  15. RETINOL [Concomitant]
     Active Substance: RETINOL
  16. VITAMIN D3 [Concomitant]
     Active Substance: CHOLECALCIFEROL

REACTIONS (7)
  - Rheumatoid arthritis [Unknown]
  - Muscle spasms [Unknown]
  - Joint swelling [Unknown]
  - Surgery [Unknown]
  - Fall [Not Recovered/Not Resolved]
  - Muscle strain [Not Recovered/Not Resolved]
  - Product use in unapproved indication [Unknown]

NARRATIVE: CASE EVENT DATE: 20240101
